FAERS Safety Report 12302403 (Version 1)
Quarter: 2016Q2

REPORT INFORMATION
  Report Type: Spontaneous
  Country: SK (occurrence: SK)
  Receive Date: 20160425
  Receipt Date: 20160425
  Transmission Date: 20160815
  Serious: Yes (Death, Other)
  Sender: FDA-Public Use
  Company Number: SK-GILEAD-2016-0210147

PATIENT
  Age: 59 Year
  Sex: Male
  Weight: 119 kg

DRUGS (1)
  1. HARVONI [Suspect]
     Active Substance: LEDIPASVIR\SOFOSBUVIR
     Indication: PRODUCT USED FOR UNKNOWN INDICATION
     Route: 065

REACTIONS (3)
  - Sudden cardiac death [Fatal]
  - Pulmonary embolism [Fatal]
  - Arrhythmia [Fatal]
